FAERS Safety Report 25577845 (Version 1)
Quarter: 2025Q3

REPORT INFORMATION
  Report Type: Spontaneous
  Country: US (occurrence: US)
  Receive Date: 20250718
  Receipt Date: 20250718
  Transmission Date: 20251020
  Serious: No
  Sender: NOVO NORDISK
  Company Number: US-NOVOPROD-1364092

PATIENT
  Sex: Female

DRUGS (1)
  1. RYBELSUS [Suspect]
     Active Substance: SEMAGLUTIDE
     Indication: Weight control
     Route: 048
     Dates: start: 202406, end: 202407

REACTIONS (3)
  - Pain [Unknown]
  - Abdominal pain upper [Unknown]
  - Product use in unapproved indication [Unknown]
